FAERS Safety Report 21676333 (Version 1)
Quarter: 2022Q4

REPORT INFORMATION
  Report Type: Report from Study
  Country: US (occurrence: US)
  Receive Date: 20221202
  Receipt Date: 20221202
  Transmission Date: 20230112
  Serious: Yes (Other)
  Sender: FDA-Public Use
  Company Number: US-BAYER-2022A163217

PATIENT
  Age: 54 Year
  Sex: Male

DRUGS (1)
  1. NUBEQA [Suspect]
     Active Substance: DAROLUTAMIDE
     Indication: Hormone-refractory prostate cancer
     Dosage: 600 MG, BID
     Route: 048
     Dates: start: 20221115

REACTIONS (6)
  - Neuropathy peripheral [None]
  - Constipation [None]
  - Haemorrhoids [None]
  - Prostatic pain [None]
  - Pyrexia [None]
  - Night sweats [None]

NARRATIVE: CASE EVENT DATE: 20221116
